FAERS Safety Report 6143670-2 (Version None)
Quarter: 2009Q2

REPORT INFORMATION
  Report Type: 
  Country: None (occurrence: None)
  Receive Date: 20090403
  Receipt Date: 20090326
  Transmission Date: 20091009
  Serious: No
  Sender: FDA-Public Use
  Company Number: US-EISAI MEDIAL RESEARCH-E7273-00061-SPO-US

PATIENT
  Sex: Male

DRUGS (2)
  1. TARGRETIN [Suspect]
     Indication: T-CELL LYMPHOMA
     Route: 048
     Dates: start: 20081110, end: 20090120
  2. LOPID [Suspect]
     Route: 065
     Dates: start: 20081222, end: 20090121

REACTIONS (1)
  - PANCREATIC CARCINOMA [None]
